FAERS Safety Report 15221242 (Version 4)
Quarter: 2018Q4

REPORT INFORMATION
  Report Type: Report from Study
  Country: US (occurrence: US)
  Receive Date: 20180731
  Receipt Date: 20181108
  Transmission Date: 20190204
  Serious: Yes (Hospitalization, Other)
  Sender: FDA-Public Use
  Company Number: US-PFIZER INC-2018177452

PATIENT
  Age: 57 Year
  Sex: Female

DRUGS (4)
  1. IBRANCE [Suspect]
     Active Substance: PALBOCICLIB
     Indication: BREAST CANCER FEMALE
     Dosage: 125 MG, DAILY
     Route: 048
     Dates: start: 20180417
  2. IBRANCE [Suspect]
     Active Substance: PALBOCICLIB
     Dosage: 100 MG, CYCLIC (21 DAYS ON AND 7 DAYS OFF)
     Route: 048
     Dates: start: 20180418
  3. IBRANCE [Suspect]
     Active Substance: PALBOCICLIB
     Dosage: 100 MG, CYCLIC (CYCLES OF 21 DAYS ON AND 7 DAYS OFF), DAILY
     Route: 048
     Dates: start: 201807
  4. IBRANCE [Suspect]
     Active Substance: PALBOCICLIB
     Dosage: 100 MG, CYCLIC (DAILY/21 DAYS ON AND 7DAYS OFF)
     Route: 048
     Dates: start: 201807, end: 2018

REACTIONS (9)
  - Fall [Unknown]
  - Product use in unapproved indication [Unknown]
  - Pyrexia [Unknown]
  - Rib fracture [Unknown]
  - Renal impairment [Unknown]
  - Fatigue [Not Recovered/Not Resolved]
  - Vomiting [Unknown]
  - Upper limb fracture [Unknown]
  - White blood cell count decreased [Not Recovered/Not Resolved]

NARRATIVE: CASE EVENT DATE: 2018
